FAERS Safety Report 24419468 (Version 2)
Quarter: 2024Q4

REPORT INFORMATION
  Report Type: Spontaneous
  Country: MY (occurrence: MY)
  Receive Date: 20241010
  Receipt Date: 20241018
  Transmission Date: 20250114
  Serious: No
  Sender: ROCHE
  Company Number: MY-BoehringerIngelheim-2023-BI-278364

PATIENT
  Age: 50 Year
  Sex: Male

DRUGS (1)
  1. ALTEPLASE [Suspect]
     Active Substance: ALTEPLASE
     Indication: Ischaemic stroke
     Dosage: 80 MG, 1 DAY DOSE INTERVAL FROM 50MG/50ML TREATMENT SET
     Route: 041
     Dates: start: 20230101, end: 20230101

REACTIONS (1)
  - Haemoptysis [Recovered/Resolved]

NARRATIVE: CASE EVENT DATE: 20230101
